FAERS Safety Report 26177654 (Version 1)
Quarter: 2025Q4

REPORT INFORMATION
  Report Type: Spontaneous
  Country: US (occurrence: US)
  Receive Date: 20251219
  Receipt Date: 20251219
  Transmission Date: 20260117
  Serious: Yes (Other)
  Sender: VELOXIS PHARMACEUTICALS
  Company Number: US-Calliditas-2025CAL03068

PATIENT
  Age: 54 Year
  Sex: Female

DRUGS (7)
  1. TARPEYO [Suspect]
     Active Substance: BUDESONIDE
     Indication: IgA nephropathy
     Dosage: 16MG (4MG CAPSULES) ONCE DAILY
     Route: 061
  2. TARPEYO [Suspect]
     Active Substance: BUDESONIDE
     Dosage: UNK
     Route: 061
  3. TARPEYO [Suspect]
     Active Substance: BUDESONIDE
     Dosage: UNK
     Route: 061
  4. CARVEDILOL [Concomitant]
     Active Substance: CARVEDILOL
     Indication: Product used for unknown indication
     Dosage: UNK
  5. ALDACTONE [Concomitant]
     Active Substance: SPIRONOLACTONE
     Indication: Product used for unknown indication
     Dosage: UNK
  6. VALSARTAN [Concomitant]
     Active Substance: VALSARTAN
     Indication: Product used for unknown indication
     Dosage: UNK
  7. NORVASC [Concomitant]
     Active Substance: AMLODIPINE BESYLATE
     Indication: Product used for unknown indication
     Dosage: UNK

REACTIONS (9)
  - Artery dissection [Recovering/Resolving]
  - Eye haemorrhage [Recovering/Resolving]
  - Food craving [Unknown]
  - Diarrhoea [Unknown]
  - Contusion [Recovering/Resolving]
  - Muscle spasms [Recovering/Resolving]
  - Muscle spasms [Unknown]
  - Headache [Recovering/Resolving]
  - Blood pressure increased [Recovering/Resolving]

NARRATIVE: CASE EVENT DATE: 20251205
